FAERS Safety Report 6237621-X (Version None)
Quarter: 2009Q2

REPORT INFORMATION
  Report Type: 
  Country: None (occurrence: None)
  Receive Date: 20090619
  Receipt Date: 20090615
  Transmission Date: 20091009
  Serious: Yes (Life-Threatening)
  Sender: FDA-Public Use
  Company Number: US-MERCK-0804USA03967

PATIENT
  Age: 43 Year
  Sex: Male

DRUGS (4)
  1. ISENTRESS [Suspect]
     Indication: HIV INFECTION
     Route: 048
     Dates: start: 20071129, end: 20080312
  2. PROZAC [Concomitant]
     Indication: ANTIRETROVIRAL THERAPY
     Route: 065
  3. SUSTIVA [Concomitant]
     Route: 048
  4. EPZICOM [Concomitant]
     Route: 065

REACTIONS (2)
  - DEPRESSION [None]
  - SUICIDAL IDEATION [None]
